FAERS Safety Report 24294070 (Version 1)
Quarter: 2024Q3

REPORT INFORMATION
  Report Type: Spontaneous
  Country: US (occurrence: US)
  Receive Date: 20240906
  Receipt Date: 20240906
  Transmission Date: 20241017
  Serious: No
  Sender: DOMPE FARMACEUTICI
  Company Number: US-FARMAPROD-202403-1135

PATIENT
  Sex: Female

DRUGS (14)
  1. OXERVATE [Suspect]
     Active Substance: CENEGERMIN-BKBJ
     Indication: Neurotrophic keratopathy
     Route: 047
     Dates: start: 20240320, end: 20240516
  2. OXERVATE [Suspect]
     Active Substance: CENEGERMIN-BKBJ
     Indication: Trigeminal neuropathy
  3. OXERVATE [Suspect]
     Active Substance: CENEGERMIN-BKBJ
  4. VITAMIN D3 [Concomitant]
     Active Substance: CHOLECALCIFEROL
  5. VITAMIN E [Concomitant]
     Active Substance: .ALPHA.-TOCOPHEROL
  6. VITAMIN K [Concomitant]
     Active Substance: PHYTONADIONE
  7. VITAMINS [Concomitant]
     Active Substance: VITAMINS
  8. KETOROLAC TROMETHAMINE [Concomitant]
     Active Substance: KETOROLAC TROMETHAMINE
  9. KRILL OIL [Concomitant]
     Active Substance: DIETARY SUPPLEMENT\KRILL OIL
  10. FISH OIL [Concomitant]
     Active Substance: FISH OIL
  11. LOSARTAN POTASSIUM [Concomitant]
     Active Substance: LOSARTAN POTASSIUM
  12. HEMP PROTEIN FIBER [Concomitant]
  13. EXTRA STRENGHT TYLENOL [Concomitant]
  14. FLAX SEED [Concomitant]
     Active Substance: FLAX SEED

REACTIONS (8)
  - Eye pain [Not Recovered/Not Resolved]
  - Eyelid pain [Unknown]
  - Headache [Not Recovered/Not Resolved]
  - Hypoaesthesia eye [Not Recovered/Not Resolved]
  - Drug ineffective [Unknown]
  - Product administration error [Unknown]
  - Ocular discomfort [Not Recovered/Not Resolved]
  - Off label use [Unknown]
